FAERS Safety Report 9303889 (Version 3)
Quarter: 2013Q3

REPORT INFORMATION
  Report Type: Spontaneous
  Country: US (occurrence: US)
  Receive Date: 20130522
  Receipt Date: 20130925
  Transmission Date: 20140515
  Serious: Yes (Death, Hospitalization, Other)
  Sender: FDA-Public Use
  Company Number: US-ALEXION-A201301102

PATIENT
  Age: 50 Year
  Sex: Male

DRUGS (1)
  1. SOLIRIS 300MG [Suspect]
     Indication: HAEMOLYTIC URAEMIC SYNDROME
     Dosage: 900 MG, QW
     Route: 042

REACTIONS (3)
  - Cerebral haemorrhage [Fatal]
  - Hypertension [Unknown]
  - Dysphagia [Unknown]
